FAERS Safety Report 6161976-8 (Version None)
Quarter: 2009Q2

REPORT INFORMATION
  Report Type: 
  Country: None (occurrence: None)
  Receive Date: 20090421
  Receipt Date: 20080603
  Transmission Date: 20091009
  Serious: No
  Sender: FDA-Public Use
  Company Number: US-SOLVAY-00208002453

PATIENT
  Age: 41 Year
  Sex: Female
  Weight: 56.5 kg

DRUGS (1)
  1. ANDROGEL [Suspect]
     Indication: ACCIDENTAL EXPOSURE
     Dosage: DAILY DOSE: 2.5 GRAM(S) VIA PUMP
     Route: 062
     Dates: start: 20080401

REACTIONS (2)
  - NAUSEA [None]
  - VOMITING [None]
